FAERS Safety Report 7392632-6 (Version None)
Quarter: 2011Q2

REPORT INFORMATION
  Report Type: 
  Country: None (occurrence: None)
  Receive Date: 20110404
  Receipt Date: 20110329
  Transmission Date: 20111010
  Serious: Yes (Other)
  Sender: FDA-Public Use
  Company Number: US-ABBOTT-11P-163-0714781-00

PATIENT
  Sex: Male
  Weight: 101.7 kg

DRUGS (3)
  1. NIASPAN [Suspect]
     Indication: HIGH DENSITY LIPOPROTEIN DECREASED
     Route: 048
     Dates: start: 20110315, end: 20110315
  2. CRESTOR [Concomitant]
     Indication: BLOOD CHOLESTEROL INCREASED
  3. LOVAZA [Concomitant]
     Indication: PRODUCT USED FOR UNKNOWN INDICATION

REACTIONS (13)
  - DIZZINESS [None]
  - ERYTHEMA [None]
  - LOSS OF CONSCIOUSNESS [None]
  - ASTHENIA [None]
  - SYNCOPE [None]
  - PRURITUS [None]
  - PARAESTHESIA [None]
  - PHARYNGEAL OEDEMA [None]
  - FLUSHING [None]
  - SPEECH DISORDER [None]
  - HYPERHIDROSIS [None]
  - ADVERSE DRUG REACTION [None]
  - RASH ERYTHEMATOUS [None]
